FAERS Safety Report 6334710-6 (Version None)
Quarter: 2009Q3

REPORT INFORMATION
  Report Type: 
  Country: None (occurrence: None)
  Receive Date: 20090831
  Receipt Date: 20090820
  Transmission Date: 20100115
  Serious: Yes (Hospitalization, Other)
  Sender: FDA-Public Use
  Company Number: US-ELI_LILLY_AND_COMPANY-US200908004478

PATIENT
  Sex: Female

DRUGS (15)
  1. FORTEO [Suspect]
  2. SUCRALFATE [Concomitant]
     Dosage: 1 MG, 4/D
  3. SINEMET [Concomitant]
     Dosage: 1 D/F, OTHER
  4. MIRTAZAPINE [Concomitant]
     Dosage: 0.5 D/F, DAILY (1/D)
  5. ISOSORBIDE DINITRATE [Concomitant]
     Dosage: 1 D/F, EACH MORNING
  6. LISINOPRIL [Concomitant]
     Dosage: 5 MG, DAILY (1/D)
  7. METFORMIN HCL [Concomitant]
     Dosage: 2 D/F, DAILY (1/D)
  8. LEVOTHYROXINE [Concomitant]
     Dosage: 1 D/F, DAILY (1/D)
  9. PRENATAL [Concomitant]
  10. SIMVASTATIN [Concomitant]
     Dosage: 20 MG, DAILY (1/D)
  11. SPIRONOLACTONE [Concomitant]
     Dosage: 0.5 D/F, DAILY (1/D)
  12. LASIX [Concomitant]
  13. ASPIRIN [Concomitant]
     Dosage: UNK, DAILY (1/D)
  14. CALCIUM 600 + D [Concomitant]
     Dosage: UNK, 2/D
  15. TYLENOL (CAPLET) [Concomitant]
     Dosage: UNK, AS NEEDED

REACTIONS (9)
  - ASTHENIA [None]
  - BLOOD GLUCOSE INCREASED [None]
  - BLOOD SODIUM DECREASED [None]
  - CARDIAC FAILURE CONGESTIVE [None]
  - CHEST PAIN [None]
  - DYSPNOEA [None]
  - FEELING ABNORMAL [None]
  - NAUSEA [None]
  - WEIGHT INCREASED [None]
